FAERS Safety Report 9544670 (Version 1)
Quarter: 2013Q3

REPORT INFORMATION
  Report Type: Spontaneous
  Country: US (occurrence: US)
  Receive Date: 20130923
  Receipt Date: 20130923
  Transmission Date: 20140515
  Serious: No
  Sender: FDA-Public Use
  Company Number: US-GLAXOSMITHKLINE-A0997072A

PATIENT
  Age: 74 Year
  Sex: Female

DRUGS (2)
  1. ABREVA [Suspect]
     Indication: ORAL HERPES
     Dates: start: 20120901
  2. VARICELLA VIRUS VACCINE (NON-GSK) [Suspect]
     Indication: PROPHYLAXIS
     Route: 065
     Dates: start: 2012, end: 2012

REACTIONS (2)
  - Application site discolouration [Unknown]
  - Drug interaction [Unknown]
